FAERS Safety Report 5491516-8 (Version None)
Quarter: 2007Q4

REPORT INFORMATION
  Report Type: 
  Country: None (occurrence: None)
  Receive Date: 20071022
  Receipt Date: 20071012
  Transmission Date: 20080405
  Serious: Yes (Hospitalization)
  Sender: FDA-Public Use
  Company Number: PHFR2007GB03011

PATIENT
  Age: 85 Year
  Sex: Female

DRUGS (8)
  1. DICLOFENAC [Suspect]
     Indication: SPINAL OSTEOARTHRITIS
     Dosage: 25 MG, TID
     Route: 048
     Dates: end: 20060313
  2. DICLOFENAC [Suspect]
     Dosage: 50 MG, TID
     Route: 048
     Dates: start: 20060313, end: 20060316
  3. ADCAL-D3 [Concomitant]
     Dosage: 2 DOSE FORM, QD
     Route: 048
  4. BECLOMETHASONE DIPROPIONATE [Concomitant]
  5. CO-AMILOFRUSE [Concomitant]
     Dosage: 1 DOSE FORM
     Route: 048
  6. FERROUS SULFATE TAB [Concomitant]
     Dosage: 200 MG, BID
     Route: 048
  7. PREDNISOLONE [Concomitant]
     Dosage: 2 MG, QD
     Route: 048
  8. SALBUTAMOL [Concomitant]

REACTIONS (4)
  - BLOOD ELECTROLYTES INCREASED [None]
  - BLOOD UREA INCREASED [None]
  - LOWER RESPIRATORY TRACT INFECTION [None]
  - NEPHROPATHY TOXIC [None]
